FAERS Safety Report 24264810 (Version 1)
Quarter: 2024Q3

REPORT INFORMATION
  Report Type: Spontaneous
  Country: US (occurrence: None)
  Receive Date: 20240829
  Receipt Date: 20240829
  Transmission Date: 20241017
  Serious: Yes (Hospitalization)
  Sender: Public
  Company Number: None

PATIENT
  Age: 70 Year
  Sex: Female
  Weight: 42.5 kg

DRUGS (2)
  1. CARBOPLATIN [Suspect]
     Active Substance: CARBOPLATIN
     Dates: end: 20240805
  2. TAXOL [Suspect]
     Active Substance: PACLITAXEL
     Dates: end: 20240805

REACTIONS (8)
  - Catheter site dehiscence [None]
  - Catheter site pain [None]
  - Injury [None]
  - Poisoning [None]
  - Procedural complication [None]
  - Infection [None]
  - Haemoglobin decreased [None]
  - Device related infection [None]

NARRATIVE: CASE EVENT DATE: 20240824
